FAERS Safety Report 7491198-X (Version None)
Quarter: 2011Q2

REPORT INFORMATION
  Report Type: 
  Country: None (occurrence: None)
  Receive Date: 20110518
  Receipt Date: 20110518
  Transmission Date: 20111010
  Serious: Yes (Hospitalization)
  Sender: FDA-Public Use
  Company Number: None

PATIENT
  Age: 81 Year
  Sex: Male
  Weight: 72.5755 kg

DRUGS (1)
  1. ZYCLARA [Suspect]
     Indication: ACTINIC KERATOSIS
     Dosage: ONE PACKET ONCE A DAY TOP
     Route: 061
     Dates: start: 20110303, end: 20110311

REACTIONS (9)
  - SCAB [None]
  - PYREXIA [None]
  - DIARRHOEA [None]
  - CHILLS [None]
  - ACCIDENT [None]
  - CLOSTRIDIAL INFECTION [None]
  - TOOTH DISORDER [None]
  - IMMUNE SYSTEM DISORDER [None]
  - LACERATION [None]
